FAERS Safety Report 6175584-6 (Version None)
Quarter: 2009Q2

REPORT INFORMATION
  Report Type: 
  Country: None (occurrence: None)
  Receive Date: 20090501
  Receipt Date: 20090427
  Transmission Date: 20091009
  Serious: Yes (Other)
  Sender: FDA-Public Use
  Company Number: DE-JNJFOC-20090402680

PATIENT
  Sex: Male
  Weight: 38.5 kg

DRUGS (1)
  1. RISPERDAL [Suspect]
     Indication: TOURETTE'S DISORDER
     Dosage: UPTO 3 MG
     Route: 048

REACTIONS (3)
  - FATIGUE [None]
  - LEUKOPENIA [None]
  - OFF LABEL USE [None]
